FAERS Safety Report 14516518 (Version 1)
Quarter: 2018Q1

REPORT INFORMATION
  Report Type: Other
  Country: HK (occurrence: HK)
  Receive Date: 20180212
  Receipt Date: 20180212
  Transmission Date: 20180509
  Serious: Yes (Other)
  Sender: FDA-Public Use
  Company Number: HK-DEXPHARM-20180063

PATIENT
  Age: 46 Year
  Sex: Male

DRUGS (1)
  1. JIA RONG ZHUANG GU TONG BI JIAO NANG (UNDECLARED INGREDIENT) [Suspect]
     Active Substance: NAPROXEN SODIUM
     Indication: PAIN

REACTIONS (3)
  - Renal impairment [None]
  - Peptic ulcer [Unknown]
  - Secondary adrenocortical insufficiency [None]
